FAERS Safety Report 14772536 (Version 1)
Quarter: 2018Q2

REPORT INFORMATION
  Report Type: Spontaneous
  Country: FR (occurrence: FR)
  Receive Date: 20180418
  Receipt Date: 20180418
  Transmission Date: 20180711
  Serious: Yes (Other)
  Sender: FDA-Public Use
  Company Number: FR-MERCK KGAA-2045910

PATIENT
  Age: 68 Year
  Sex: Female

DRUGS (1)
  1. NOVOTHYROX [Suspect]
     Active Substance: LEVOTHYROXINE SODIUM
     Indication: HYPOTHYROIDISM
     Dates: start: 201706, end: 201709

REACTIONS (16)
  - Psychiatric symptom [Recovered/Resolved]
  - Hyperthyroidism [Recovered/Resolved]
  - Hypokinesia [Recovered/Resolved]
  - Gastrointestinal disorder [Recovered/Resolved]
  - Loss of personal independence in daily activities [Recovered/Resolved]
  - Gastrointestinal pain [Recovered/Resolved]
  - Nausea [Recovered/Resolved]
  - Vertigo [Recovered/Resolved]
  - Depression [Recovered/Resolved]
  - Malaise [Recovered/Resolved]
  - Muscle spasms [Recovered/Resolved]
  - Drug intolerance [None]
  - Abdominal pain [Recovered/Resolved]
  - Headache [Recovered/Resolved]
  - Affective disorder [Recovered/Resolved]
  - Impaired driving ability [Recovered/Resolved]

NARRATIVE: CASE EVENT DATE: 2017
